FAERS Safety Report 9217475 (Version 2)
Quarter: 2013Q3

REPORT INFORMATION
  Report Type: Report from Study
  Country: TW (occurrence: TW)
  Receive Date: 20130408
  Receipt Date: 20130813
  Transmission Date: 20140515
  Serious: Yes (Death, Life-Threatening, Hospitalization, Other)
  Sender: FDA-Public Use
  Company Number: TW-009507513-1304TWN000579

PATIENT
  Age: 68 Year
  Sex: Female
  Weight: 44.1 kg

DRUGS (17)
  1. DEXAMETHASONE [Suspect]
     Indication: PLASMA CELL MYELOMA
     Dosage: 20 MG ON DAYS 1, 2, 4, 5, 8, 9, 11 AND 12 EVERY 21 DAYS
     Route: 048
     Dates: start: 20130104
  2. STUDY DRUG (UNSPECIFIED) [Suspect]
     Indication: PLASMA CELL MYELOMA
     Dosage: UNK
     Dates: start: 20130104
  3. BORTEZOMIB [Suspect]
     Indication: PLASMA CELL MYELOMA
     Dosage: 1.8 MG/M2 SUBCUTANEOUS ON 1, 4, 8, 11 EVERY 21 DAYS
     Route: 058
     Dates: start: 20130104
  4. MOBIC [Concomitant]
     Dosage: UNK
     Dates: start: 20120629, end: 20130126
  5. STEPRONIN [Concomitant]
     Dosage: UNK
     Dates: start: 20130114
  6. SOLU-CORTEF [Concomitant]
     Indication: PROPHYLAXIS
     Dosage: UNK
     Dates: start: 20130114
  7. DIPHENHYDRAMINE HYDROCHLORIDE [Concomitant]
     Indication: PROPHYLAXIS
     Dosage: UNK
     Dates: start: 20130114
  8. NOVAMIN (PROCHLORPERAZINE MALEATE) [Concomitant]
     Indication: NAUSEA
     Dosage: UNK
     Dates: start: 20130114
  9. DULCOLAX [Concomitant]
     Indication: CONSTIPATION
     Dosage: UNK
     Dates: start: 20130114
  10. FENTANYL [Concomitant]
     Indication: PROCEDURAL PAIN
     Dosage: UNK
     Dates: start: 20130114
  11. METHYCOBAL [Concomitant]
     Indication: NEUROPATHY PERIPHERAL
     Dosage: UNK
     Dates: start: 20130114
  12. MAGNESIUM OXIDE [Concomitant]
     Dosage: UNK
     Dates: start: 20130114
  13. SOLAXIN [Concomitant]
     Indication: MUSCLE SPASMS
     Dosage: UNK
     Dates: start: 20130114
  14. ZOMETA [Concomitant]
     Indication: BONE PAIN
     Dosage: UNK
     Dates: start: 20130114
  15. PANTOPRAZOLE [Concomitant]
     Indication: GASTRIC ULCER
  16. PENICILLIN V BENZATHINE [Concomitant]
  17. ALBUTEROL [Concomitant]

REACTIONS (9)
  - Septic shock [Fatal]
  - Pneumonia [Fatal]
  - Peritonitis [Fatal]
  - Fungaemia [Fatal]
  - Sepsis [Fatal]
  - Hepatitis [Fatal]
  - Upper gastrointestinal haemorrhage [Not Recovered/Not Resolved]
  - Hypovolaemic shock [Not Recovered/Not Resolved]
  - Duodenal ulcer [Not Recovered/Not Resolved]
